FAERS Safety Report 6839004-8 (Version None)
Quarter: 2010Q3

REPORT INFORMATION
  Report Type: 
  Country: None (occurrence: None)
  Receive Date: 20100713
  Receipt Date: 20080516
  Transmission Date: 20110219
  Serious: No
  Sender: FDA-Public Use
  Company Number: US-PFIZER INC-2007037672

PATIENT
  Sex: Male
  Weight: 88.6 kg

DRUGS (4)
  1. CHANTIX [Suspect]
     Indication: SMOKING CESSATION THERAPY
     Route: 048
     Dates: start: 20070131
  2. CHANTIX [Suspect]
     Dates: start: 20080401
  3. EFFEXOR [Concomitant]
     Dates: start: 20070101
  4. STRATTERA [Concomitant]
     Dates: start: 20070101

REACTIONS (8)
  - DIZZINESS [None]
  - DRUG ADMINISTRATION ERROR [None]
  - ERECTILE DYSFUNCTION [None]
  - FEELING JITTERY [None]
  - HYPERHIDROSIS [None]
  - NAUSEA [None]
  - NERVOUSNESS [None]
  - WEIGHT DECREASED [None]
